FAERS Safety Report 12695045 (Version 4)
Quarter: 2018Q1

REPORT INFORMATION
  Report Type: Spontaneous
  Country: DE (occurrence: DE)
  Receive Date: 20160829
  Receipt Date: 20180213
  Transmission Date: 20180508
  Serious: Yes (Hospitalization, Other)
  Sender: FDA-Public Use
  Company Number: DE-BAYER-2016-162952

PATIENT
  Age: 34 Year
  Sex: Female
  Weight: 55 kg

DRUGS (3)
  1. CIPROFLOXACIN. [Suspect]
     Active Substance: CIPROFLOXACIN
     Indication: CYSTITIS
     Dosage: 250MG DAILY
     Route: 048
     Dates: start: 20160116, end: 20160120
  2. CIPROFLOXACIN. [Suspect]
     Active Substance: CIPROFLOXACIN
     Indication: CYSTITIS
     Dosage: 250MG DAILY
     Route: 048
     Dates: start: 20160214, end: 20160224
  3. CIPROFLOXACIN. [Suspect]
     Active Substance: CIPROFLOXACIN
     Indication: MIDDLE EAR INFLAMMATION
     Dosage: 500 MG, BID
     Route: 048
     Dates: start: 20160120

REACTIONS (46)
  - Asthenia [Unknown]
  - Palpitations [Unknown]
  - Mucosal dryness [Not Recovered/Not Resolved]
  - Fatigue [Not Recovered/Not Resolved]
  - Muscle spasms [Not Recovered/Not Resolved]
  - Neuralgia [Not Recovered/Not Resolved]
  - Panic attack [Not Recovered/Not Resolved]
  - Rash [Not Recovered/Not Resolved]
  - Tendon pain [Not Recovered/Not Resolved]
  - Dry skin [Not Recovered/Not Resolved]
  - Vision blurred [None]
  - Memory impairment [Not Recovered/Not Resolved]
  - Cataract [Not Recovered/Not Resolved]
  - Tinnitus [None]
  - Alopecia [Not Recovered/Not Resolved]
  - Impaired healing [Unknown]
  - Sleep disorder [Unknown]
  - Hormone level abnormal [Not Recovered/Not Resolved]
  - Dry mouth [Not Recovered/Not Resolved]
  - Food intolerance [Not Recovered/Not Resolved]
  - Insomnia [Not Recovered/Not Resolved]
  - Dizziness [Not Recovered/Not Resolved]
  - Nervous system disorder [Not Recovered/Not Resolved]
  - Tachyarrhythmia [Unknown]
  - Feeling abnormal [None]
  - Varicose vein [Not Recovered/Not Resolved]
  - Muscular weakness [None]
  - Impaired gastric emptying [None]
  - Mental impairment [Unknown]
  - Weight decreased [None]
  - Polyneuropathy [Not Recovered/Not Resolved]
  - Loss of consciousness [None]
  - Contusion [None]
  - Anxiety [Not Recovered/Not Resolved]
  - Toxicity to various agents [Not Recovered/Not Resolved]
  - Thinking abnormal [Not Recovered/Not Resolved]
  - Headache [None]
  - Nausea [Not Recovered/Not Resolved]
  - Mobility decreased [None]
  - Vascular compression [None]
  - Malaise [Not Recovered/Not Resolved]
  - Myalgia [Not Recovered/Not Resolved]
  - Nightmare [Unknown]
  - Paraesthesia [Not Recovered/Not Resolved]
  - Visual acuity reduced [Unknown]
  - Connective tissue disorder [None]

NARRATIVE: CASE EVENT DATE: 20160125
